FAERS Safety Report 11831873 (Version 1)
Quarter: 2015Q4

REPORT INFORMATION
  Report Type: Spontaneous
  Country: US (occurrence: None)
  Receive Date: 20151211
  Receipt Date: 20151211
  Transmission Date: 20160305
  Serious: Yes (Hospitalization, Disabling, Other)
  Sender: FDA-Public Use
  Company Number: None

PATIENT
  Age: 40 Year
  Sex: Male
  Weight: 113.4 kg

DRUGS (16)
  1. VITAMIN A [Concomitant]
     Active Substance: VITAMIN A
  2. CQ-10 [Concomitant]
  3. OMEGA 3 [Concomitant]
     Active Substance: OMEGA-3 FATTY ACIDS
  4. ZYPREXA [Suspect]
     Active Substance: OLANZAPINE
     Indication: MENTAL DISORDER
     Dosage: 10 YEARS, ON AND OFF
     Route: 048
  5. MELATONIN [Concomitant]
     Active Substance: MELATONIN
  6. GEODON [Suspect]
     Active Substance: ZIPRASIDONE HYDROCHLORIDE\ZIPRASIDONE MESYLATE
     Indication: MENTAL DISORDER
     Dosage: 10 YEARS ON AND OFF
     Route: 048
  7. BIOTIN [Concomitant]
     Active Substance: BIOTIN
  8. GARLIC. [Concomitant]
     Active Substance: GARLIC
  9. CINNAMON. [Concomitant]
     Active Substance: CINNAMON
  10. MAGNESIUM [Concomitant]
     Active Substance: MAGNESIUM
  11. VITAMIN E [Concomitant]
     Active Substance: .ALPHA.-TOCOPHEROL
  12. ENALIPRIL [Concomitant]
  13. BACLOFEN. [Concomitant]
     Active Substance: BACLOFEN
  14. D#-100 [Concomitant]
  15. SUPER B-COMPLEX [Concomitant]
  16. POTASSIUM GLUCONATE [Concomitant]
     Active Substance: POTASSIUM GLUCONATE

REACTIONS (7)
  - Hospitalisation [None]
  - Mental disorder [None]
  - Weight increased [None]
  - Nervous system disorder [None]
  - Hepatic steatosis [None]
  - Dystonia [None]
  - Drug ineffective [None]

NARRATIVE: CASE EVENT DATE: 20011104
